FAERS Safety Report 5073369-5 (Version None)
Quarter: 2006Q3

REPORT INFORMATION
  Report Type: 
  Country: None (occurrence: None)
  Receive Date: 20060711
  Receipt Date: 20050913
  Transmission Date: 20061208
  Serious: Yes (Death)
  Sender: FDA-Public Use
  Company Number: 143138USA

PATIENT
  Age: 33 Year
  Sex: Female

DRUGS (2)
  1. CYTARABINE [Suspect]
     Indication: MYELOID LEUKAEMIA
     Dates: start: 20050720, end: 20050724
  2. CYTARABINE [Suspect]
     Indication: MYELOID LEUKAEMIA
     Dates: start: 20050804, end: 20050808

REACTIONS (6)
  - CONFUSIONAL STATE [None]
  - ENTEROCOCCAL INFECTION [None]
  - MENTAL STATUS CHANGES [None]
  - NUCLEAR MAGNETIC RESONANCE IMAGING BRAIN ABNORMAL [None]
  - PYREXIA [None]
  - UNRESPONSIVE TO STIMULI [None]
